FAERS Safety Report 16925624 (Version 1)
Quarter: 2019Q4

REPORT INFORMATION
  Report Type: Spontaneous
  Country: US (occurrence: US)
  Receive Date: 20190823
  Receipt Date: 20190823
  Transmission Date: 20200122
  Serious: No
  Sender: FDA-Public Use
  Company Number: None

PATIENT
  Sex: Male

DRUGS (1)
  1. COPAXONE [Suspect]
     Active Substance: GLATIRAMER ACETATE
     Indication: MULTIPLE SCLEROSIS
     Route: 058
     Dates: start: 20091124

REACTIONS (10)
  - Chest pain [None]
  - Back pain [None]
  - Fatigue [None]
  - Musculoskeletal pain [None]
  - Abdominal pain upper [None]
  - Myocardial infarction [None]
  - Pain in extremity [None]
  - Neck pain [None]
  - Gastrooesophageal reflux disease [None]
  - Hiatus hernia [None]
